FAERS Safety Report 9591464 (Version 2)
Quarter: 2013Q4

REPORT INFORMATION
  Report Type: Spontaneous
  Country: US (occurrence: US)
  Receive Date: 20131003
  Receipt Date: 20131003
  Transmission Date: 20140711
  Serious: No
  Sender: FDA-Public Use
  Company Number: US-AMGEN-USASP2012079563

PATIENT
  Age: 59 Year
  Sex: Female

DRUGS (10)
  1. ENBREL [Suspect]
     Indication: RHEUMATOID ARTHRITIS
     Dosage: 50 MG, WEEKLY
     Route: 058
     Dates: start: 20120920
  2. METHOTREXATE [Concomitant]
     Dosage: 50 MG, UNK
  3. CALCIUM [Concomitant]
     Dosage: UNK
  4. VITAMIN D                          /00107901/ [Concomitant]
     Dosage: 1000 UNIT, UNK
  5. SIMVASTATIN [Concomitant]
     Dosage: 10 MG, UNK
  6. SINGULAR [Concomitant]
     Dosage: 4 MG, UNK
     Route: 048
  7. ZANTAC [Concomitant]
     Dosage: 75 UNK, UNK
  8. FOLIC ACID [Concomitant]
     Dosage: UNK
  9. ASPIRE [Concomitant]
     Dosage: 81 MG, UNK
  10. ZOLOFT [Concomitant]
     Dosage: 25 MG, UNK

REACTIONS (9)
  - Carpal tunnel syndrome [Not Recovered/Not Resolved]
  - Cough [Unknown]
  - Body temperature increased [Unknown]
  - Arthralgia [Not Recovered/Not Resolved]
  - Pain in extremity [Not Recovered/Not Resolved]
  - Hypoaesthesia [Not Recovered/Not Resolved]
  - Musculoskeletal stiffness [Not Recovered/Not Resolved]
  - Injection site pain [Unknown]
  - Paraesthesia [Not Recovered/Not Resolved]
